FAERS Safety Report 4344992-8 (Version None)
Quarter: 2004Q2

REPORT INFORMATION
  Report Type: 
  Country: None (occurrence: None)
  Receive Date: 20040420
  Receipt Date: 20040406
  Transmission Date: 20050107
  Serious: Yes (Other)
  Sender: FDA-Public Use
  Company Number: 200410232BCA

PATIENT
  Age: 76 Year
  Sex: Female

DRUGS (5)
  1. CIPRO [Suspect]
     Indication: URINARY TRACT INFECTION
     Dosage: 500 MG, TOTAL DAILY, ORAL
     Route: 048
     Dates: start: 20031108, end: 20031111
  2. CALCIUM [Concomitant]
  3. VITAMIN D [Concomitant]
  4. GLUCOSAMINE [Concomitant]
  5. CLARITHROMYCIN [Concomitant]

REACTIONS (1)
  - HENOCH-SCHONLEIN PURPURA [None]
